FAERS Safety Report 23849917 (Version 1)
Quarter: 2024Q2

REPORT INFORMATION
  Report Type: Report from Study
  Country: US (occurrence: US)
  Receive Date: 20240513
  Receipt Date: 20240513
  Transmission Date: 20240716
  Serious: Yes (Hospitalization)
  Sender: FDA-Public Use
  Company Number: US-ABBVIE-5756661

PATIENT
  Sex: Male

DRUGS (1)
  1. RINVOQ [Suspect]
     Active Substance: UPADACITINIB
     Indication: Crohn^s disease
     Route: 048
     Dates: start: 20240106

REACTIONS (7)
  - Transient ischaemic attack [Unknown]
  - Taste disorder [Not Recovered/Not Resolved]
  - Lethargy [Recovered/Resolved]
  - Cerebrovascular accident [Unknown]
  - Dehydration [Recovered/Resolved]
  - Blood creatinine increased [Unknown]
  - Decreased appetite [Not Recovered/Not Resolved]

NARRATIVE: CASE EVENT DATE: 20240101
